FAERS Safety Report 15202113 (Version 2)
Quarter: 2018Q3

REPORT INFORMATION
  Report Type: Report from Study
  Country: BR (occurrence: BR)
  Receive Date: 20180726
  Receipt Date: 20180731
  Transmission Date: 20181010
  Serious: Yes (Other)
  Sender: FDA-Public Use
  Company Number: BR-JNJFOC-20180728444

PATIENT
  Age: 60 Year
  Sex: Female
  Weight: 44 kg

DRUGS (2)
  1. ROSUVASTATIN. [Concomitant]
     Active Substance: ROSUVASTATIN
     Route: 065
  2. SIMPONI [Suspect]
     Active Substance: GOLIMUMAB
     Indication: ANKYLOSING SPONDYLITIS
     Route: 058
     Dates: start: 20180707

REACTIONS (5)
  - Dizziness [Unknown]
  - Paraesthesia [Unknown]
  - Spinal pain [Not Recovered/Not Resolved]
  - Insomnia [Unknown]
  - Dysentery [Unknown]

NARRATIVE: CASE EVENT DATE: 201807
